FAERS Safety Report 15693899 (Version 3)
Quarter: 2018Q4

REPORT INFORMATION
  Report Type: Spontaneous
  Country: JP (occurrence: JP)
  Receive Date: 20181206
  Receipt Date: 20181226
  Transmission Date: 20190205
  Serious: Yes (Hospitalization, Other)
  Sender: FDA-Public Use
  Company Number: JP-GLAXOSMITHKLINE-JP2018JPN218334

PATIENT
  Age: 74 Year
  Sex: Female

DRUGS (4)
  1. SAMTIREL [Suspect]
     Active Substance: ATOVAQUONE
     Indication: ANTIFUNGAL PROPHYLAXIS
     Dosage: UNK
     Route: 048
     Dates: end: 20180821
  2. TACROLIMUS HYDRATE [Concomitant]
     Active Substance: TACROLIMUS
     Dosage: UNK
  3. RITUXIMAB (GENETICAL RECOMBINATION) [Concomitant]
     Active Substance: RITUXIMAB
     Indication: MYASTHENIA GRAVIS
     Dosage: UNK
  4. PREDNISOLONE. [Concomitant]
     Active Substance: PREDNISOLONE
     Dosage: 25MG AND 10 MG ON AN ALTERNATE-DAY BASIS

REACTIONS (7)
  - Condition aggravated [Unknown]
  - Drug level increased [Recovering/Resolving]
  - Escherichia test positive [Unknown]
  - Pneumocystis jirovecii pneumonia [Unknown]
  - Depressed level of consciousness [Unknown]
  - C-reactive protein abnormal [Recovering/Resolving]
  - Klebsiella test positive [Unknown]

NARRATIVE: CASE EVENT DATE: 2018
